FAERS Safety Report 8639004 (Version 2)
Quarter: 2013Q1

REPORT INFORMATION
  Report Type: Spontaneous
  Country: US (occurrence: US)
  Receive Date: 20120627
  Receipt Date: 20130124
  Transmission Date: 20140127
  Serious: No
  Sender: FDA-Public Use
  Company Number: US-ASTRAZENECA-2012SE40545

PATIENT
  Age: 48 Year
  Sex: Female

DRUGS (1)
  1. SYMBICORT PMDI [Suspect]
     Dosage: 160/4.5 MCG, FREQUECY UNKNOWN
     Route: 055

REACTIONS (5)
  - Blood glucose decreased [Unknown]
  - Dyspnoea [Unknown]
  - Diabetes mellitus [Unknown]
  - Disturbance in attention [Unknown]
  - Drug dose omission [Unknown]
